FAERS Safety Report 19683280 (Version 2)
Quarter: 2022Q1

REPORT INFORMATION
  Report Type: Spontaneous
  Country: US (occurrence: US)
  Receive Date: 20210810
  Receipt Date: 20220124
  Transmission Date: 20220423
  Serious: Yes (Other)
  Sender: FDA-Public Use
  Company Number: US-HORIZON THERAPEUTICS-HZN-2021-003686

PATIENT

DRUGS (2)
  1. TEPEZZA [Suspect]
     Active Substance: TEPROTUMUMAB-TRBW
     Indication: Endocrine ophthalmopathy
     Dosage: UNK
     Route: 065
  2. SELENIUM [Concomitant]
     Active Substance: SELENIUM

REACTIONS (7)
  - Thyroid disorder [Unknown]
  - Weight decreased [Recovered/Resolved]
  - Therapy partial responder [Unknown]
  - Muscle spasms [Recovered/Resolved]
  - Fatigue [Recovered/Resolved]
  - Hypoacusis [Recovered/Resolved]
  - Symptom recurrence [Unknown]
